FAERS Safety Report 4355828-3 (Version None)
Quarter: 2004Q2

REPORT INFORMATION
  Report Type: 
  Country: None (occurrence: None)
  Receive Date: 20040505
  Receipt Date: 20040413
  Transmission Date: 20050107
  Serious: Yes (Hospitalization)
  Sender: FDA-Public Use
  Company Number: 041-0981-M0000028

PATIENT
  Age: 72 Year
  Sex: Male
  Weight: 88 kg

DRUGS (13)
  1. ATORVASTATIN (ATORVASTATIN) [Suspect]
     Indication: CORONARY ARTERY DISEASE
     Dosage: SEE IMAGE
     Route: 048
     Dates: start: 19981223, end: 19990215
  2. ATORVASTATIN (ATORVASTATIN) [Suspect]
     Indication: CORONARY ARTERY DISEASE
     Dosage: SEE IMAGE
     Route: 048
     Dates: start: 19990216, end: 20000511
  3. NADROPARIN CALCIUM (NADROPARIN CALCIUM) [Concomitant]
  4. FELODIPINE [Concomitant]
  5. ACETYLSALICYLIC ACID SRT [Concomitant]
  6. INSULIN [Concomitant]
  7. METFORMIN HCL [Concomitant]
  8. CIPROFLOXACIN (CLPROFLOXACIN) [Concomitant]
  9. PANTOPRAZOLE (PANTOPRAZOLE) [Concomitant]
  10. QUINAPRIL HCL [Concomitant]
  11. NITROGLYCERIN [Concomitant]
  12. ATENOLOL [Concomitant]
  13. MAGNESIUM ASPARTATE (MAGNESIUM ASPARTATE) [Concomitant]

REACTIONS (10)
  - ANASTOMOTIC COMPLICATION [None]
  - AORTIC ANEURYSM [None]
  - BLOOD CREATININE INCREASED [None]
  - DIALYSIS [None]
  - HYPERTENSION [None]
  - MYOCARDIAL INFARCTION [None]
  - PNEUMONIA [None]
  - POST PROCEDURAL COMPLICATION [None]
  - POST PROCEDURAL HAEMORRHAGE [None]
  - THROMBECTOMY [None]
